FAERS Safety Report 16009139 (Version 2)
Quarter: 2019Q1

REPORT INFORMATION
  Report Type: Report from Study
  Country: None (occurrence: BR)
  Receive Date: 20190224
  Receipt Date: 20190312
  Transmission Date: 20190418
  Serious: Yes (Hospitalization, Other)
  Sender: FDA-Public Use
  Company Number: BR-ABBVIE-19K-020-2676465-00

PATIENT
  Sex: Female
  Weight: 80 kg

DRUGS (2)
  1. HUMIRA [Suspect]
     Active Substance: ADALIMUMAB
     Route: 058
     Dates: start: 201902
  2. HUMIRA [Suspect]
     Active Substance: ADALIMUMAB
     Indication: RHEUMATOID ARTHRITIS
     Route: 058
     Dates: start: 20150101, end: 201807

REACTIONS (2)
  - Blood cholesterol increased [Not Recovered/Not Resolved]
  - Cartilage injury [Recovering/Resolving]

NARRATIVE: CASE EVENT DATE: 2017
